FAERS Safety Report 5536155-5 (Version None)
Quarter: 2007Q4

REPORT INFORMATION
  Report Type: 
  Country: None (occurrence: None)
  Receive Date: 20071206
  Receipt Date: 20071128
  Transmission Date: 20080405
  Serious: Yes (Hospitalization)
  Sender: FDA-Public Use
  Company Number: AR-WYE-H01472307

PATIENT
  Sex: Male
  Weight: 92.2 kg

DRUGS (12)
  1. SIROLIMUS [Suspect]
     Indication: PROPHYLAXIS AGAINST TRANSPLANT REJECTION
     Dosage: 5 MG, FREQUENCY UNSPECIFIED
     Route: 048
     Dates: start: 20040123
  2. ATENOLOL [Concomitant]
     Route: 048
     Dates: start: 20041217
  3. BEZAFIBRATE [Concomitant]
     Route: 048
     Dates: start: 19960225
  4. GLIMEPIRIDE [Concomitant]
     Route: 048
     Dates: start: 20041217
  5. PRAVASTATIN [Concomitant]
     Route: 048
     Dates: start: 20041217
  6. METHYLPREDNISOLONE [Concomitant]
     Route: 048
  7. OMEPRAZOLE [Concomitant]
     Route: 048
     Dates: start: 20040424
  8. SULFAMETHOXAZOLE AND TRIMETHOPRIM [Concomitant]
     Dosage: ALTERNATE DAYS
     Route: 048
     Dates: start: 20040123
  9. EZETIMIBE [Concomitant]
     Route: 048
     Dates: start: 20041217
  10. ENALAPRIL [Concomitant]
     Route: 048
     Dates: start: 20050422
  11. AMLODIPINE [Concomitant]
     Route: 048
     Dates: start: 20050310
  12. AZATHIOPRINE [Concomitant]
     Route: 048
     Dates: start: 20040426

REACTIONS (1)
  - LUNG DISORDER [None]
